FAERS Safety Report 4430931-8 (Version None)
Quarter: 2004Q3

REPORT INFORMATION
  Report Type: 
  Country: None (occurrence: None)
  Receive Date: 20040823
  Receipt Date: 20040817
  Transmission Date: 20050211
  Serious: Yes (Hospitalization)
  Sender: FDA-Public Use
  Company Number: GB-MERCK-0408GBR00154

PATIENT
  Age: 65 Year
  Sex: Female

DRUGS (11)
  1. ACETAMINOPHEN AND CODEINE PHOSPHATE [Concomitant]
     Route: 065
  2. AMLODIPINE BESYLATE [Concomitant]
     Route: 065
  3. ATENOLOL [Concomitant]
     Route: 065
  4. CALCIUM CARBONATE AND CHOLECALCIFEROL [Concomitant]
     Indication: OSTEOPOROSIS
     Route: 048
  5. ETIDRONATE DISODIUM [Suspect]
     Indication: OSTEOPOROSIS
     Route: 048
     Dates: end: 20040720
  6. FOLIC ACID [Concomitant]
     Route: 065
  7. HYDROXYZINE HYDROCHLORIDE [Concomitant]
     Route: 048
  8. LANSOPRAZOLE [Concomitant]
     Route: 048
     Dates: end: 20040718
  9. LANSOPRAZOLE [Concomitant]
     Route: 048
     Dates: start: 20040719
  10. VIOXX [Suspect]
     Indication: OSTEOARTHRITIS
     Route: 048
     Dates: end: 20040720
  11. THIAMINE [Concomitant]
     Route: 048

REACTIONS (5)
  - ABDOMINAL PAIN UPPER [None]
  - HAEMATEMESIS [None]
  - HIATUS HERNIA [None]
  - OESOPHAGITIS [None]
  - PORTAL HYPERTENSIVE GASTROPATHY [None]
